FAERS Safety Report 5969369-0 (Version None)
Quarter: 2008Q4

REPORT INFORMATION
  Report Type: 
  Country: None (occurrence: None)
  Receive Date: 20081126
  Receipt Date: 20081119
  Transmission Date: 20090506
  Serious: Yes (Other)
  Sender: FDA-Public Use
  Company Number: US-PFIZER INC-2008084784

PATIENT
  Sex: Female
  Weight: 86.6 kg

DRUGS (5)
  1. SUTENT [Suspect]
     Indication: RENAL CELL CARCINOMA
     Route: 048
     Dates: start: 20080619, end: 20080721
  2. SUTENT [Suspect]
     Indication: METASTASES TO ABDOMINAL CAVITY
  3. SYNTHROID [Concomitant]
  4. DARVOCET-N 100 [Concomitant]
  5. COLACE [Concomitant]

REACTIONS (1)
  - GUILLAIN-BARRE SYNDROME [None]
